FAERS Safety Report 14233312 (Version 8)
Quarter: 2018Q3

REPORT INFORMATION
  Report Type: Spontaneous
  Country: JP (occurrence: JP)
  Receive Date: 20171129
  Receipt Date: 20180911
  Transmission Date: 20181010
  Serious: Yes (Death, Hospitalization, Other)
  Sender: FDA-Public Use
  Company Number: JP-009507513-1704JPN000265J

PATIENT
  Age: 45 Year
  Sex: Male
  Weight: 83 kg

DRUGS (3)
  1. KEYTRUDA [Suspect]
     Active Substance: PEMBROLIZUMAB
     Indication: LUNG ADENOCARCINOMA STAGE IV
     Dosage: 200 MG, Q3W
     Route: 041
     Dates: start: 20170309, end: 20170309
  2. BETAMETHASONE. [Concomitant]
     Active Substance: BETAMETHASONE
     Indication: LUNG ADENOCARCINOMA STAGE IV
     Dosage: 1.5 MG, QD
     Route: 048
  3. INSULIN [Concomitant]
     Active Substance: INSULIN NOS
     Indication: TYPE 2 DIABETES MELLITUS
     Dosage: 122 IU, UNK
     Route: 051

REACTIONS (1)
  - Malignant neoplasm progression [Fatal]

NARRATIVE: CASE EVENT DATE: 20170330
